FAERS Safety Report 13598209 (Version 2)
Quarter: 2017Q3

REPORT INFORMATION
  Report Type: Spontaneous
  Country: US (occurrence: US)
  Receive Date: 20170531
  Receipt Date: 20170814
  Transmission Date: 20171127
  Serious: Yes (Other)
  Sender: FDA-Public Use
  Company Number: US-BAYER-2017-098279

PATIENT
  Age: 22 Year
  Sex: Female
  Weight: 87.98 kg

DRUGS (1)
  1. SKYLA [Suspect]
     Active Substance: LEVONORGESTREL
     Indication: CONTRACEPTION
     Dosage: 14 MCG/24HR, CONT
     Route: 015
     Dates: start: 20161227, end: 201705

REACTIONS (6)
  - Pregnancy with contraceptive device [None]
  - Genital haemorrhage [None]
  - Abdominal pain [None]
  - Dizziness [None]
  - Abortion spontaneous [None]
  - Vaginal odour [None]

NARRATIVE: CASE EVENT DATE: 201704
